FAERS Safety Report 23483242 (Version 4)
Quarter: 2024Q1

REPORT INFORMATION
  Report Type: Spontaneous
  Country: JP (occurrence: JP)
  Receive Date: 20240205
  Receipt Date: 20240318
  Transmission Date: 20240410
  Serious: Yes (Death, Hospitalization)
  Sender: FDA-Public Use
  Company Number: JP-ELI_LILLY_AND_COMPANY-JP202402000429AA

PATIENT
  Age: 76 Year
  Sex: Male

DRUGS (15)
  1. MOUNJARO [Suspect]
     Active Substance: TIRZEPATIDE
     Indication: Type 2 diabetes mellitus
     Dosage: 2.5 MG
     Route: 058
  2. MOUNJARO [Suspect]
     Active Substance: TIRZEPATIDE
     Dosage: 5 MG
     Route: 058
  3. CALCIUM CARBONATE [Concomitant]
     Active Substance: CALCIUM CARBONATE
  4. REBAMIPIDE [Concomitant]
     Active Substance: REBAMIPIDE
  5. NICORANDIL [Concomitant]
     Active Substance: NICORANDIL
  6. MITIGLINIDE CALCIUM HYDRATE [Concomitant]
     Active Substance: MITIGLINIDE CALCIUM HYDRATE
  7. RENAGEL [Concomitant]
     Active Substance: SEVELAMER HYDROCHLORIDE
  8. VOGLIBOSE [Concomitant]
     Active Substance: VOGLIBOSE
  9. ITOPRIDE HYDROCHLORIDE [Concomitant]
     Active Substance: ITOPRIDE HYDROCHLORIDE
  10. FUROSEMIDE [Concomitant]
     Active Substance: FUROSEMIDE
  11. LANSOPRAZOLE [Concomitant]
     Active Substance: LANSOPRAZOLE
  12. FEBUXOSTAT [Concomitant]
     Active Substance: FEBUXOSTAT
  13. ALFACALCIDOL [Concomitant]
     Active Substance: ALFACALCIDOL
  14. ASPIRIN [Concomitant]
     Active Substance: ASPIRIN
     Dosage: UNK
     Dates: start: 202312
  15. CILOSTAZOL [Concomitant]
     Active Substance: CILOSTAZOL
     Dosage: UNK
     Dates: start: 202312

REACTIONS (1)
  - Cerebral infarction [Fatal]

NARRATIVE: CASE EVENT DATE: 20240101
